FAERS Safety Report 5609080-9 (Version None)
Quarter: 2008Q1

REPORT INFORMATION
  Report Type: 
  Country: None (occurrence: None)
  Receive Date: 20080131
  Receipt Date: 20080117
  Transmission Date: 20080703
  Serious: Yes (Hospitalization)
  Sender: FDA-Public Use
  Company Number: US-AMGEN-STX227751

PATIENT
  Sex: Female
  Weight: 64.9 kg

DRUGS (1)
  1. ENBREL [Suspect]
     Indication: RHEUMATOID ARTHRITIS
     Route: 058
     Dates: start: 20060608

REACTIONS (4)
  - CERVICAL MYELOPATHY [None]
  - INJECTION SITE RASH [None]
  - MYOCARDIAL INFARCTION [None]
  - NAUSEA [None]
